FAERS Safety Report 5114759-1 (Version None)
Quarter: 2006Q3

REPORT INFORMATION
  Report Type: 
  Country: None (occurrence: None)
  Receive Date: 20060922
  Receipt Date: 20060912
  Transmission Date: 20061208
  Serious: Yes (Other)
  Sender: FDA-Public Use
  Company Number: 2006111326

PATIENT
  Age: 46 Year
  Sex: Female
  Weight: 79.3795 kg

DRUGS (5)
  1. GEODON [Suspect]
     Indication: DEPRESSION
     Dosage: 120 MG (60 MG, 2 IN 1 D), ORAL
     Dates: start: 20040101
  2. GEODON [Suspect]
     Indication: SUICIDAL IDEATION
     Dosage: 120 MG (60 MG, 2 IN 1 D), ORAL
     Dates: start: 20040101
  3. GEODON [Suspect]
     Indication: DEPRESSION
     Dosage: 120 MG (60 MG, 2 IN 1 D), ORAL
     Dates: start: 20060101
  4. GEODON [Suspect]
     Indication: SUICIDAL IDEATION
     Dosage: 120 MG (60 MG, 2 IN 1 D), ORAL
     Dates: start: 20060101
  5. ABILIFY [Concomitant]

REACTIONS (5)
  - AGITATION [None]
  - CARDIAC DISORDER [None]
  - DERMATITIS [None]
  - HYPERTENSION [None]
  - STRESS [None]
